FAERS Safety Report 16631871 (Version 1)
Quarter: 2019Q3

REPORT INFORMATION
  Report Type: Spontaneous
  Country: US (occurrence: US)
  Receive Date: 20190725
  Receipt Date: 20190725
  Transmission Date: 20191004
  Serious: No
  Sender: FDA-Public Use
  Company Number: US-JNJFOC-20190732376

PATIENT
  Sex: Female

DRUGS (3)
  1. LEVAQUIN [Suspect]
     Active Substance: LEVOFLOXACIN
     Indication: RHINITIS
     Route: 065
  2. TASIGNA [Concomitant]
     Active Substance: NILOTINIB
     Route: 065
  3. BOSULIF [Concomitant]
     Active Substance: BOSUTINIB MONOHYDRATE
     Route: 065

REACTIONS (4)
  - Insomnia [Unknown]
  - Condition aggravated [Unknown]
  - Sinus congestion [Unknown]
  - Pyrexia [Unknown]
